FAERS Safety Report 11471157 (Version 2)
Quarter: 2015Q3

REPORT INFORMATION
  Report Type: Spontaneous
  Country: US (occurrence: US)
  Receive Date: 20150903
  Receipt Date: 20150903
  Transmission Date: 20151125
  Serious: No
  Sender: FDA-Public Use
  Company Number: US-ELI_LILLY_AND_COMPANY-US201201005901

PATIENT
  Sex: Female

DRUGS (1)
  1. CYMBALTA [Suspect]
     Active Substance: DULOXETINE HYDROCHLORIDE
     Indication: OSTEOARTHRITIS
     Dosage: 30 MG, QD
     Dates: start: 20111215, end: 20111225

REACTIONS (7)
  - Intentional product misuse [Unknown]
  - Haemorrhoidal haemorrhage [Unknown]
  - Drug ineffective [Unknown]
  - Headache [Unknown]
  - Dry mouth [Unknown]
  - Constipation [Unknown]
  - Mouth ulceration [Unknown]
